FAERS Safety Report 21326176 (Version 4)
Quarter: 2022Q4

REPORT INFORMATION
  Report Type: Report from Study
  Country: CO (occurrence: CO)
  Receive Date: 20220913
  Receipt Date: 20221121
  Transmission Date: 20230113
  Serious: Yes (Other)
  Sender: FDA-Public Use
  Company Number: CO-NOVARTISPH-NVSC2021CO285563

PATIENT
  Sex: Female

DRUGS (1)
  1. BROLUCIZUMAB [Suspect]
     Active Substance: BROLUCIZUMAB
     Indication: Macular degeneration
     Dosage: 120 MG, QMO (IN THE EYE)
     Route: 047

REACTIONS (8)
  - Effusion [Unknown]
  - Blindness [Unknown]
  - Retinal detachment [Unknown]
  - Crying [Unknown]
  - Vision blurred [Unknown]
  - Visual impairment [Unknown]
  - Eye inflammation [Unknown]
  - Incorrect dose administered [Unknown]
